FAERS Safety Report 12946158 (Version 1)
Quarter: 2016Q4

REPORT INFORMATION
  Report Type: Spontaneous
  Country: US (occurrence: US)
  Receive Date: 20161116
  Receipt Date: 20161116
  Transmission Date: 20170207
  Serious: Yes (Death, Other)
  Sender: FDA-Public Use
  Company Number: US-DRREDDYS-USA/USA/16/0084802

PATIENT
  Sex: Male

DRUGS (1)
  1. ATORVASTATIN [Suspect]
     Active Substance: ATORVASTATIN
     Indication: TYPE IIA HYPERLIPIDAEMIA
     Route: 065

REACTIONS (8)
  - Completed suicide [Fatal]
  - Agitation [Unknown]
  - Anxiety [Unknown]
  - Attention deficit/hyperactivity disorder [Recovering/Resolving]
  - Somnambulism [Recovering/Resolving]
  - Nightmare [Recovering/Resolving]
  - Gun shot wound [Fatal]
  - Depression [Recovering/Resolving]
